FAERS Safety Report 5600279-4 (Version None)
Quarter: 2007Q4

REPORT INFORMATION
  Report Type: 
  Country: None (occurrence: None)
  Receive Date: 20071226
  Receipt Date: 20070402
  Transmission Date: 20080405
  Serious: Yes (Other)
  Sender: FDA-Public Use
  Company Number: 238885

PATIENT
  Age: 48 Year
  Sex: Male
  Weight: 122.9 kg

DRUGS (1)
  1. RAPTIVA [Suspect]
     Indication: PSORIASIS
     Dosage: 1.2 ML, 1/WEEK, SUBCUTANEOUS
     Route: 058
     Dates: start: 20050609, end: 20070312

REACTIONS (3)
  - PHARYNGITIS STREPTOCOCCAL [None]
  - PSORIASIS [None]
  - PSORIATIC ARTHROPATHY [None]
